FAERS Safety Report 12528716 (Version 2)
Quarter: 2016Q3

REPORT INFORMATION
  Report Type: Spontaneous
  Country: US (occurrence: US)
  Receive Date: 20160705
  Receipt Date: 20160713
  Transmission Date: 20161109
  Serious: Yes (Life-Threatening, Hospitalization, Other)
  Sender: FDA-Public Use
  Company Number: US-SAOL THERAPEUTICS-2016SAO00024

PATIENT
  Sex: Female

DRUGS (11)
  1. LIORESAL [Suspect]
     Active Substance: BACLOFEN
     Indication: SECONDARY PROGRESSIVE MULTIPLE SCLEROSIS
     Dosage: 630.6 ?G, \DAY
     Dates: start: 20160602
  2. DIAZEPAM. [Suspect]
     Active Substance: DIAZEPAM
     Dosage: 5 MG, 4X/DAY
  3. ALBUTEROL. [Suspect]
     Active Substance: ALBUTEROL
  4. MYRBETRIQ [Suspect]
     Active Substance: MIRABEGRON
  5. ZANTAC [Suspect]
     Active Substance: RANITIDINE HYDROCHLORIDE
     Dosage: 600 MG, 3X/DAY
  6. BACLOFEN (ORAL) [Suspect]
     Active Substance: BACLOFEN
     Dosage: 20 MG, 4X/DAY
  7. NABUMETONE. [Suspect]
     Active Substance: NABUMETONE
     Dosage: 750 MG, 2X/DAY
  8. CITALOPRAM [Suspect]
     Active Substance: CITALOPRAM HYDROBROMIDE
     Dosage: UNK
  9. GABAPENTIN. [Suspect]
     Active Substance: GABAPENTIN
     Dosage: 600 MG, 4X/DAY
  10. OXYCODONE [Suspect]
     Active Substance: OXYCODONE
     Dosage: UNK UNK, AS NEEDED
  11. FUROSEMIDE. [Suspect]
     Active Substance: FUROSEMIDE

REACTIONS (5)
  - Unresponsive to stimuli [Recovered/Resolved]
  - Blood sodium decreased [Unknown]
  - Urinary tract infection [Unknown]
  - Encephalopathy [Unknown]
  - Acute respiratory failure [Recovered/Resolved]

NARRATIVE: CASE EVENT DATE: 2016
